FAERS Safety Report 9458396 (Version 1)
Quarter: 2013Q3

REPORT INFORMATION
  Report Type: Spontaneous
  Country: DE (occurrence: DE)
  Receive Date: 20130814
  Receipt Date: 20130814
  Transmission Date: 20140515
  Serious: Yes (Hospitalization)
  Sender: FDA-Public Use
  Company Number: DE-ROCHE-1261698

PATIENT
  Sex: Female

DRUGS (3)
  1. PERJETA [Suspect]
     Indication: BREAST CANCER METASTATIC
     Route: 065
     Dates: start: 20130603
  2. HERCEPTIN [Suspect]
     Indication: BREAST CANCER METASTATIC
     Route: 065
  3. DOCETAXEL [Suspect]
     Indication: BREAST CANCER METASTATIC
     Route: 065

REACTIONS (13)
  - Hepatic cirrhosis [Unknown]
  - Pyrexia [Not Recovered/Not Resolved]
  - Infection [Unknown]
  - Hypokalaemia [Unknown]
  - Cutis laxa [Unknown]
  - Onycholysis [Unknown]
  - Oedema peripheral [Not Recovered/Not Resolved]
  - Pleural effusion [Unknown]
  - Ascites [Not Recovered/Not Resolved]
  - Diarrhoea [Not Recovered/Not Resolved]
  - Portal hypertension [Not Recovered/Not Resolved]
  - General physical health deterioration [Recovering/Resolving]
  - Splenomegaly [Unknown]
